FAERS Safety Report 6294526-6 (Version None)
Quarter: 2009Q3

REPORT INFORMATION
  Report Type: 
  Country: None (occurrence: None)
  Receive Date: 20090803
  Receipt Date: 20090724
  Transmission Date: 20100115
  Serious: Yes (Other)
  Sender: FDA-Public Use
  Company Number: IT-NOVOPROD-288954

PATIENT
  Sex: Female

DRUGS (10)
  1. PROTAPHANE [Suspect]
     Indication: DRUG USE FOR UNKNOWN INDICATION
     Dates: start: 20080517, end: 20090517
  2. METFORMINA                         /00082701/ [Suspect]
     Indication: DRUG USE FOR UNKNOWN INDICATION
     Dates: start: 20080517, end: 20090517
  3. AMARYL [Suspect]
     Indication: DRUG USE FOR UNKNOWN INDICATION
     Dates: start: 20080517, end: 20090517
  4. MANIDIPINE [Concomitant]
  5. ASPIRIN [Concomitant]
     Dosage: 100 MG, UNK
  6. NEURABEN [Concomitant]
  7. SIMVASTATIN [Concomitant]
  8. PROPRANOLOL [Concomitant]
  9. VASERETIC [Concomitant]
     Dosage: 20 MG, UNK
  10. MODURETIC 5-50 [Concomitant]

REACTIONS (1)
  - HYPOTONIC-HYPORESPONSIVE EPISODE [None]
